FAERS Safety Report 14179729 (Version 1)
Quarter: 2017Q4

REPORT INFORMATION
  Report Type: Spontaneous
  Country: US (occurrence: US)
  Receive Date: 20171110
  Receipt Date: 20171110
  Transmission Date: 20180321
  Serious: No
  Sender: FDA-Public Use
  Company Number: US-ASTRAZENECA-2017SF09741

PATIENT
  Age: 458 Month
  Sex: Female
  Weight: 45.4 kg

DRUGS (4)
  1. MONTELUKAST [Concomitant]
     Active Substance: MONTELUKAST SODIUM
     Indication: PROPHYLAXIS
     Route: 048
     Dates: start: 201710
  2. ALBUTEROL PROAIR HFA [Concomitant]
     Indication: ASTHMA
     Dosage: 90.0UG AS REQUIRED
     Route: 055
  3. ALBUTEROL PROAIR HFA [Concomitant]
     Indication: PROPHYLAXIS
     Dosage: 90.0UG AS REQUIRED
     Route: 055
  4. SYMBICORT [Suspect]
     Active Substance: BUDESONIDE\FORMOTEROL FUMARATE DIHYDRATE
     Indication: ASTHMA
     Dosage: 160/4.5 MCG ONE PUFF TWO TIMES A DAY
     Route: 055
     Dates: start: 201710

REACTIONS (7)
  - Asthma [Recovering/Resolving]
  - Speech disorder [Recovering/Resolving]
  - Chest discomfort [Recovering/Resolving]
  - Movement disorder [Recovering/Resolving]
  - Asthenia [Recovering/Resolving]
  - Fatigue [Recovering/Resolving]
  - Off label use [Not Recovered/Not Resolved]

NARRATIVE: CASE EVENT DATE: 201710
